FAERS Safety Report 25038720 (Version 1)
Quarter: 2025Q1

REPORT INFORMATION
  Report Type: Spontaneous
  Country: CA (occurrence: CA)
  Receive Date: 20250304
  Receipt Date: 20250304
  Transmission Date: 20250408
  Serious: Yes (Other)
  Sender: CSL BEHRING
  Company Number: CA-BEH-2025197420

PATIENT
  Age: 77 Year
  Sex: Female

DRUGS (3)
  1. HUMAN IMMUNOGLOBULIN G [Suspect]
     Active Substance: HUMAN IMMUNOGLOBULIN G
     Indication: Rheumatoid arthritis
     Route: 065
  2. SIMPONI [Suspect]
     Active Substance: GOLIMUMAB
     Indication: Rheumatoid arthritis
     Dosage: 150 MG, QMT (SOLUTION INTRAVENOUS) (1 EVERY 4 WEEKS)
     Route: 041
  3. SIMPONI [Suspect]
     Active Substance: GOLIMUMAB
     Dosage: 150 MG, QMT (SOLUTION FOR INFUSION) (1 EVERY 4 WEEKS)
     Route: 041

REACTIONS (8)
  - Bursitis [Recovering/Resolving]
  - Drug ineffective for unapproved indication [Recovering/Resolving]
  - Headache [Recovering/Resolving]
  - Meningitis aseptic [Recovering/Resolving]
  - Nausea [Recovering/Resolving]
  - Rheumatoid arthritis [Recovering/Resolving]
  - Sinus disorder [Recovering/Resolving]
  - Off label use [Unknown]
